FAERS Safety Report 8338793-3 (Version None)
Quarter: 2012Q2

REPORT INFORMATION
  Report Type: 
  Country: None (occurrence: None)
  Receive Date: 20120504
  Receipt Date: 20120426
  Transmission Date: 20120825
  Serious: Yes (Other)
  Sender: FDA-Public Use
  Company Number: CA-ROCHE-1051350

PATIENT
  Sex: Female

DRUGS (2)
  1. XOLAIR [Suspect]
     Dates: start: 20120302
  2. XOLAIR [Suspect]
     Indication: ASTHMA
     Route: 058
     Dates: start: 20110729

REACTIONS (4)
  - TENDONITIS [None]
  - FATIGUE [None]
  - HYPERSENSITIVITY [None]
  - DYSPNOEA EXERTIONAL [None]
